FAERS Safety Report 13552142 (Version 1)
Quarter: 2017Q2

REPORT INFORMATION
  Report Type: Report from Study
  Country: US (occurrence: US)
  Receive Date: 20170516
  Receipt Date: 20170516
  Transmission Date: 20170830
  Serious: Yes (Other)
  Sender: FDA-Public Use
  Company Number: US-UCBSA-2017018288

PATIENT
  Age: 25 Year
  Sex: Male

DRUGS (1)
  1. LEVETIRACETAM. [Suspect]
     Active Substance: LEVETIRACETAM
     Indication: PRODUCT USED FOR UNKNOWN INDICATION
     Dosage: UNK, PROLONGED-RELEASE TABLET

REACTIONS (3)
  - Generalised tonic-clonic seizure [Unknown]
  - Partial seizures [Unknown]
  - Drug ineffective [Unknown]
